FAERS Safety Report 9026044 (Version 1)
Quarter: 2012Q4

REPORT INFORMATION
  Report Type: Spontaneous
  Country: US (occurrence: None)
  Receive Date: 20121217
  Receipt Date: 20121217
  Transmission Date: 20130627
  Serious: Yes (Hospitalization, Disabling)
  Sender: FDA-Public Use
  Company Number: None

PATIENT
  Age: 50 Year
  Sex: Female
  Weight: 102.06 kg

DRUGS (2)
  1. MACROBID [Suspect]
     Indication: UTI
     Dosage: standard, one 5 day cycle
     Dates: start: 2007
  2. NITROFURANTOIN [Suspect]
     Indication: UTI
     Dosage: standard, 2 doses, 3 days apart
     Dates: start: 2012

REACTIONS (5)
  - Hepatitis [None]
  - Headache [None]
  - Neuropathy peripheral [None]
  - Liver injury [None]
  - Pain [None]
